FAERS Safety Report 5872571-X (Version None)
Quarter: 2008Q3

REPORT INFORMATION
  Report Type: 
  Country: None (occurrence: None)
  Receive Date: 20080905
  Receipt Date: 20080822
  Transmission Date: 20090109
  Serious: Yes (Life-Threatening, Hospitalization)
  Sender: FDA-Public Use
  Company Number: GB-GENENTECH-250662

PATIENT
  Sex: Female

DRUGS (6)
  1. BEVACIZUMAB [Suspect]
     Indication: OVARIAN EPITHELIAL CANCER
     Dosage: 450 MG, Q3W
     Route: 042
     Dates: start: 20070404, end: 20070903
  2. PACLITAXEL [Suspect]
     Indication: OVARIAN CANCER
     Dosage: 282 MG, Q3W
     Route: 042
     Dates: start: 20070404, end: 20070718
  3. CARBOPLATIN [Suspect]
     Indication: OVARIAN CANCER
     Dosage: 560 MG, Q3W
     Route: 042
     Dates: start: 20070404, end: 20070718
  4. LISINOPRIL [Concomitant]
     Indication: DRUG USE FOR UNKNOWN INDICATION
     Dosage: 10 MG, QD
     Dates: start: 20070702
  5. ACETAMINOPHEN [Concomitant]
     Indication: DRUG USE FOR UNKNOWN INDICATION
     Dosage: 4 G, UNK
  6. LANSOPRAZOLE [Concomitant]
     Indication: DRUG USE FOR UNKNOWN INDICATION
     Dates: start: 20070406

REACTIONS (3)
  - INTESTINAL ISCHAEMIA [None]
  - INTESTINAL OBSTRUCTION [None]
  - PELVIC ABSCESS [None]
